FAERS Safety Report 13250527 (Version 6)
Quarter: 2021Q2

REPORT INFORMATION
  Report Type: Spontaneous
  Country: US (occurrence: US)
  Receive Date: 20170219
  Receipt Date: 20210507
  Transmission Date: 20210716
  Serious: No
  Sender: FDA-Public Use
  Company Number: US-BIOGEN-2017BI00356887

PATIENT
  Age: 51 Year
  Sex: Female

DRUGS (33)
  1. PANTOPRAZOLE SODIUM. [Concomitant]
     Active Substance: PANTOPRAZOLE SODIUM
     Route: 065
  2. CYMBALTA [Concomitant]
     Active Substance: DULOXETINE HYDROCHLORIDE
     Route: 065
  3. BACLOFEN. [Concomitant]
     Active Substance: BACLOFEN
     Route: 065
  4. ACETAMINOPHEN. [Concomitant]
     Active Substance: ACETAMINOPHEN
     Route: 065
  5. SUMATRIPTAN SUCCINATE. [Concomitant]
     Active Substance: SUMATRIPTAN SUCCINATE
     Route: 065
  6. TROSPIUM CHLORIDE. [Concomitant]
     Active Substance: TROSPIUM CHLORIDE
     Route: 065
  7. FISH OIL [Concomitant]
     Active Substance: FISH OIL
     Dosage: CONC C 500
     Route: 065
  8. TRILEPTAL [Concomitant]
     Active Substance: OXCARBAZEPINE
     Route: 065
  9. DEXAMETHASONE. [Concomitant]
     Active Substance: DEXAMETHASONE
     Route: 065
  10. GABAPENTIN. [Concomitant]
     Active Substance: GABAPENTIN
     Route: 065
  11. VITAMIN B12 [Concomitant]
     Active Substance: CYANOCOBALAMIN
     Route: 065
  12. BACLOFEN. [Concomitant]
     Active Substance: BACLOFEN
     Route: 065
  13. LEVOTHYROXINE SODIUM. [Concomitant]
     Active Substance: LEVOTHYROXINE SODIUM
     Route: 065
  14. TECFIDERA [Suspect]
     Active Substance: DIMETHYL FUMARATE
     Indication: MULTIPLE SCLEROSIS
     Route: 065
     Dates: start: 20140306
  15. TECFIDERA [Suspect]
     Active Substance: DIMETHYL FUMARATE
     Route: 065
  16. ROSE HIPS [Concomitant]
     Route: 065
  17. CYCLOBENZAPRINE HCL [Concomitant]
     Active Substance: CYCLOBENZAPRINE HYDROCHLORIDE
     Route: 065
  18. BACLOFEN. [Concomitant]
     Active Substance: BACLOFEN
     Route: 065
  19. TOPAMAX [Concomitant]
     Active Substance: TOPIRAMATE
     Route: 065
  20. PRAVASTATIN SODIUM. [Concomitant]
     Active Substance: PRAVASTATIN SODIUM
     Route: 065
  21. TECFIDERA [Suspect]
     Active Substance: DIMETHYL FUMARATE
     Route: 048
     Dates: start: 201903
  22. ASPIRIN. [Concomitant]
     Active Substance: ASPIRIN
     Route: 065
  23. KEPPRA [Concomitant]
     Active Substance: LEVETIRACETAM
     Route: 065
  24. KEPPRA [Concomitant]
     Active Substance: LEVETIRACETAM
     Route: 065
  25. BACLOFEN. [Concomitant]
     Active Substance: BACLOFEN
     Route: 065
  26. SYNTHROID [Concomitant]
     Active Substance: LEVOTHYROXINE SODIUM
     Route: 065
  27. BIOTIN [Concomitant]
     Active Substance: BIOTIN
     Dosage: GUMMIES
     Route: 065
  28. FLUTICASONE PROPIONATE. [Concomitant]
     Active Substance: FLUTICASONE PROPIONATE
     Dosage: SPRAY
     Route: 065
  29. KEPPRA [Concomitant]
     Active Substance: LEVETIRACETAM
     Route: 065
  30. HYDROCODONE [Concomitant]
     Active Substance: HYDROCODONE
     Route: 065
  31. TECFIDERA [Suspect]
     Active Substance: DIMETHYL FUMARATE
     Route: 048
     Dates: start: 201903, end: 201903
  32. ZYRTEC [Concomitant]
     Active Substance: CETIRIZINE HYDROCHLORIDE
     Route: 065
  33. KEPPRA [Concomitant]
     Active Substance: LEVETIRACETAM
     Route: 065

REACTIONS (25)
  - Dizziness [Not Recovered/Not Resolved]
  - Vitamin B12 abnormal [Unknown]
  - Insomnia [Not Recovered/Not Resolved]
  - Somnolence [Unknown]
  - Flushing [Unknown]
  - Memory impairment [Not Recovered/Not Resolved]
  - Migraine [Not Recovered/Not Resolved]
  - Alopecia [Recovered/Resolved]
  - Nausea [Unknown]
  - Multiple allergies [Not Recovered/Not Resolved]
  - Sinus disorder [Not Recovered/Not Resolved]
  - Thyroid disorder [Unknown]
  - Malaise [Recovered/Resolved]
  - Feeling hot [Not Recovered/Not Resolved]
  - Confusional state [Not Recovered/Not Resolved]
  - Pain [Not Recovered/Not Resolved]
  - Anxiety [Not Recovered/Not Resolved]
  - Blood cholesterol increased [Unknown]
  - Viral infection [Recovered/Resolved]
  - Nervousness [Not Recovered/Not Resolved]
  - White blood cell count decreased [Recovered/Resolved]
  - Stress [Unknown]
  - Blood calcium abnormal [Unknown]
  - Anaemia [Unknown]
  - Weight decreased [Recovered/Resolved]

NARRATIVE: CASE EVENT DATE: 201901
